FAERS Safety Report 6720424-7 (Version None)
Quarter: 2010Q2

REPORT INFORMATION
  Report Type: 
  Country: None (occurrence: None)
  Receive Date: 20100506
  Receipt Date: 20091212
  Transmission Date: 20101027
  Serious: Yes (Death)
  Sender: FDA-Public Use
  Company Number: 2009110651

PATIENT
  Age: 69 Year
  Sex: Male

DRUGS (13)
  1. VOLUVEN [Suspect]
     Indication: SEPSIS
     Dosage: (500 ML), INTRAVENOUS DRIP
     Route: 041
     Dates: start: 20091007, end: 20091008
  2. CIPROFLOXACIN [Concomitant]
  3. VANCOMYCIN [Concomitant]
  4. METRONIDAZOLE [Concomitant]
  5. TOBRAMYCINE (TOBRAMYCIN SULFATE) (TOBRAMYCIN SULFATE) [Concomitant]
  6. MEROPENEM (MEROPENEM) (MEROPENEM) [Concomitant]
  7. FFPS (BLOODPLASMA) (BLOODPLASMA) [Concomitant]
  8. PRBCS (RED BLOOD CELLS) (RED BLOOD CELLS) [Concomitant]
  9. CLOTTING FACTOR XIII (FACTOR XIII (FIBRIN STABILISING FACTOR)) (FACTOR [Concomitant]
  10. KETAMINE (KETAMINE) (KETAMINE) [Concomitant]
  11. MIDAZOLAME (MIDAZOLAM) (MIDAZOLAM) [Concomitant]
  12. SUPRARENIN (EPINEPHRINE) (EPINEPHRINE) [Concomitant]
  13. NOREPINEPHRINE (NOREPINEPHRINE) (NOREPINEPHRINE) [Concomitant]

REACTIONS (14)
  - ADRENAL HAEMORRHAGE [None]
  - CARDIAC FAILURE [None]
  - CHOLESTASIS [None]
  - CLOSTRIDIAL INFECTION [None]
  - HEPATIC NECROSIS [None]
  - INFLAMMATION [None]
  - MYOCARDIAL DEPRESSION [None]
  - OESOPHAGEAL STENOSIS [None]
  - PLEURISY [None]
  - PNEUMONIA [None]
  - RESPIRATORY FAILURE [None]
  - SEPTIC SHOCK [None]
  - SPLEEN DISORDER [None]
  - TOXIC EPIDERMAL NECROLYSIS [None]
